FAERS Safety Report 18889257 (Version 1)
Quarter: 2021Q1

REPORT INFORMATION
  Report Type: Spontaneous
  Country: GB (occurrence: GB)
  Receive Date: 20210212
  Receipt Date: 20210212
  Transmission Date: 20210420
  Serious: Yes (Other)
  Sender: FDA-Public Use
  Company Number: GB-BAXTER-2021BAX002713

PATIENT
  Age: 17 Year
  Sex: Male

DRUGS (4)
  1. VINCRISTINE [Suspect]
     Active Substance: VINCRISTINE
     Indication: EWING^S SARCOMA
     Dosage: CYCLICAL (8 C ? 2); CYCLICAL
     Route: 065
     Dates: start: 2014
  2. DOXIL [Suspect]
     Active Substance: DOXORUBICIN HYDROCHLORIDE
     Indication: EWING^S SARCOMA
     Dosage: CYCLICAL (8 C ? 2); CYCLICAL
     Route: 065
     Dates: start: 2014
  3. IFOSFAMIDE. [Suspect]
     Active Substance: IFOSFAMIDE
     Indication: EWING^S SARCOMA
     Dosage: CYCLICAL (8 C ? 2); CYCLICAL
     Route: 065
     Dates: start: 2014
  4. ETOPOSIDE. [Suspect]
     Active Substance: ETOPOSIDE
     Indication: EWING^S SARCOMA
     Dosage: CYCLICAL (8 C ? 2); CYCLICAL
     Route: 065
     Dates: start: 2014

REACTIONS (1)
  - Febrile neutropenia [Unknown]

NARRATIVE: CASE EVENT DATE: 2014
